FAERS Safety Report 6517073-2 (Version None)
Quarter: 2009Q4

REPORT INFORMATION
  Report Type: 
  Country: None (occurrence: None)
  Receive Date: 20091223
  Receipt Date: 20091221
  Transmission Date: 20100525
  Serious: Yes (Hospitalization)
  Sender: FDA-Public Use
  Company Number: A0784441A

PATIENT
  Age: 74 Year
  Sex: Male
  Weight: 79.5 kg

DRUGS (1)
  1. AVANDIA [Suspect]
     Indication: TYPE 2 DIABETES MELLITUS
     Dosage: 8MG PER DAY
     Route: 048
     Dates: start: 20050822, end: 20070501

REACTIONS (3)
  - CARDIAC DISORDER [None]
  - CORONARY ARTERY BYPASS [None]
  - MULTIPLE INJURIES [None]
